FAERS Safety Report 9508916 (Version 2)
Quarter: 2014Q3

REPORT INFORMATION
  Report Type: Spontaneous
  Country: US (occurrence: US)
  Receive Date: 20130909
  Receipt Date: 20140908
  Transmission Date: 20150326
  Serious: No
  Sender: FDA-Public Use
  Company Number: US-BRISTOL-MYERS SQUIBB COMPANY-19059922

PATIENT
  Age: 9 Year
  Sex: Male
  Weight: 58.05 kg

DRUGS (2)
  1. ABILIFY [Suspect]
     Active Substance: ARIPIPRAZOLE
     Dosage: DOSE INC:10ML?DOSE RED:3ML (1 MG/ML)FROM 09-OCT-2012 TO 03-JUL-2013?DOSE RED:2.5ML
     Route: 048
     Dates: start: 201206, end: 20130703
  2. FOCALIN [Concomitant]
     Active Substance: DEXMETHYLPHENIDATE HYDROCHLORIDE
     Indication: AGGRESSION
     Dosage: DOSE INC:10ML?DOSE RED:3 MG (1 MG/ML)FROM 09-OCT-2012 TO 03-JUL-2013?DOSE RED:2.5ML
     Dates: start: 201207, end: 20130703

REACTIONS (8)
  - Weight increased [Unknown]
  - Muscle twitching [Unknown]
  - Off label use [Unknown]
  - Pollakiuria [Unknown]
  - Confusional state [Unknown]
  - Drooling [Unknown]
  - Thirst [Unknown]
  - Hunger [Unknown]

NARRATIVE: CASE EVENT DATE: 20121009
